FAERS Safety Report 6589591-2 (Version None)
Quarter: 2010Q1

REPORT INFORMATION
  Report Type: 
  Country: None (occurrence: None)
  Receive Date: 20100218
  Receipt Date: 20100208
  Transmission Date: 20100710
  Serious: Yes (Hospitalization)
  Sender: FDA-Public Use
  Company Number: FR-GILEAD-2010-0026998

PATIENT
  Sex: Male

DRUGS (2)
  1. VISTIDE [Suspect]
     Indication: MYCOBACTERIUM AVIUM COMPLEX INFECTION
     Route: 042
     Dates: start: 20090428, end: 20090507
  2. BENEMIDE [Suspect]
     Route: 048
     Dates: start: 20090428, end: 20090507

REACTIONS (1)
  - AGRANULOCYTOSIS [None]
